FAERS Safety Report 6456510-9 (Version None)
Quarter: 2009Q4

REPORT INFORMATION
  Report Type: 
  Country: None (occurrence: None)
  Receive Date: 20091124
  Receipt Date: 20091124
  Transmission Date: 20100525
  Serious: No
  Sender: FDA-Public Use
  Company Number: None

PATIENT
  Age: 74 Year
  Sex: Male
  Weight: 93.5 kg

DRUGS (2)
  1. MORPHINE [Suspect]
     Dosage: 1 MG ONCE IV
     Route: 042
     Dates: start: 20091004, end: 20091004
  2. LORAZEPAM [Suspect]
     Dosage: 0.5 MG ONCE IV
     Route: 042
     Dates: start: 20091004, end: 20091004

REACTIONS (3)
  - HYPOTENSION [None]
  - SEDATION [None]
  - SOMNOLENCE [None]
